FAERS Safety Report 23843243 (Version 1)
Quarter: 2024Q2

REPORT INFORMATION
  Report Type: Spontaneous
  Country: CA (occurrence: CA)
  Receive Date: 20240510
  Receipt Date: 20240510
  Transmission Date: 20240716
  Serious: Yes (Hospitalization)
  Sender: FDA-Public Use
  Company Number: CA-TEVA-VS-3197184

PATIENT
  Age: 92 Year
  Sex: Male
  Weight: 92 kg

DRUGS (1)
  1. VENLAFAXINE HYDROCHLORIDE [Suspect]
     Active Substance: VENLAFAXINE HYDROCHLORIDE
     Indication: Anxiety
     Route: 048

REACTIONS (2)
  - Hyponatraemia [Recovered/Resolved]
  - Inappropriate antidiuretic hormone secretion [Recovered/Resolved]
